FAERS Safety Report 9517461 (Version 2)
Quarter: 2014Q1

REPORT INFORMATION
  Report Type: Spontaneous
  Country: DE (occurrence: CA)
  Receive Date: 20130911
  Receipt Date: 20140121
  Transmission Date: 20141002
  Serious: Yes (Other)
  Sender: FDA-Public Use
  Company Number: CA-FRI-1000048577

PATIENT
  Age: 73 Year
  Sex: Female
  Weight: 80 kg

DRUGS (10)
  1. MEMANTINE [Suspect]
     Indication: DEMENTIA
     Dosage: 5 MG
     Route: 048
     Dates: start: 20140107, end: 20140114
  2. ACETAMINOPHEN [Concomitant]
     Dosage: 2000 MG
     Route: 048
  3. ATORVASTATIN CALCIUM [Concomitant]
     Dosage: 20 MG
     Route: 048
  4. CHOLECALCIFEROL [Concomitant]
     Dosage: 1000 IU
     Route: 048
  5. CITALOPRAM [Concomitant]
     Dosage: 20 MG
     Route: 048
  6. DOCUSATE SODIUM [Concomitant]
     Dosage: 100 MG
     Route: 048
  7. GALANTAMINE ER [Concomitant]
     Dosage: 24 MG
     Route: 048
  8. QUETIAPINE [Concomitant]
     Route: 048
  9. SENNOSIDES [Concomitant]
     Dosage: 1 DF
     Route: 048
  10. TRAZODONE [Concomitant]
     Route: 048

REACTIONS (1)
  - Corneal irritation [Recovered/Resolved]
